FAERS Safety Report 18297815 (Version 2)
Quarter: 2020Q3

REPORT INFORMATION
  Report Type: Spontaneous
  Country: US (occurrence: US)
  Receive Date: 20200922
  Receipt Date: 20200922
  Transmission Date: 20201103
  Serious: No
  Sender: FDA-Public Use
  Company Number: US-AMARIN PHARMA, INC.-2019AMR000445

PATIENT
  Age: 78 Year
  Sex: Female
  Weight: 87.17 kg

DRUGS (10)
  1. NORDIC NATURALS XTRA DHA [Concomitant]
     Indication: BLOOD TRIGLYCERIDES ABNORMAL
     Route: 048
  2. VITAMIN D [Concomitant]
     Active Substance: VITAMIN D NOS
     Indication: PRODUCT USED FOR UNKNOWN INDICATION
     Route: 048
     Dates: start: 201908
  3. FOLIC ACID. [Concomitant]
     Active Substance: FOLIC ACID
     Indication: NERVOUSNESS
     Route: 048
  4. MEGA B [Concomitant]
     Active Substance: VITAMINS
     Indication: PRODUCT USED FOR UNKNOWN INDICATION
     Route: 048
  5. BROMELAIN [Concomitant]
     Active Substance: BROMELAINS
     Indication: ARTHROPATHY
  6. NORDIC NATURALS XTRA DHA [Concomitant]
     Indication: BLOOD CHOLESTEROL INCREASED
  7. MEGA MULTI [Concomitant]
     Indication: INSOMNIA
     Route: 048
  8. VASCEPA [Suspect]
     Active Substance: ICOSAPENT ETHYL
     Indication: PRODUCT USED FOR UNKNOWN INDICATION
     Route: 048
     Dates: start: 2018
  9. NORDIC NATURALS XTRA DHA [Concomitant]
     Indication: DEPRESSION
  10. VITAMIN B6 [Concomitant]
     Active Substance: PYRIDOXINE HYDROCHLORIDE
     Indication: EYE DISORDER
     Route: 048

REACTIONS (3)
  - Negative thoughts [Not Recovered/Not Resolved]
  - Prescribed underdose [Not Recovered/Not Resolved]
  - Depression [Not Recovered/Not Resolved]

NARRATIVE: CASE EVENT DATE: 2018
